FAERS Safety Report 11570327 (Version 1)
Quarter: 2015Q3

REPORT INFORMATION
  Report Type: Spontaneous
  Country: GB (occurrence: GB)
  Receive Date: 20150929
  Receipt Date: 20150929
  Transmission Date: 20151125
  Serious: Yes (Other)
  Sender: FDA-Public Use
  Company Number: GB-TEVA-596504ACC

PATIENT
  Age: 19 Year
  Sex: Female
  Weight: 76.65 kg

DRUGS (1)
  1. NITROFURANTOIN. [Suspect]
     Active Substance: NITROFURANTOIN
     Indication: URINARY TRACT INFECTION BACTERIAL
     Dosage: 500 MILLIGRAM DAILY;
     Route: 048
     Dates: start: 20150201, end: 20150301

REACTIONS (4)
  - Discomfort [Unknown]
  - Skin texture abnormal [Recovered/Resolved with Sequelae]
  - Pruritus [Recovered/Resolved with Sequelae]
  - Urticaria [Recovered/Resolved with Sequelae]

NARRATIVE: CASE EVENT DATE: 20150201
